FAERS Safety Report 6743463-9 (Version None)
Quarter: 2010Q2

REPORT INFORMATION
  Report Type: 
  Country: None (occurrence: None)
  Receive Date: 20100527
  Receipt Date: 20100517
  Transmission Date: 20101027
  Serious: Yes (Hospitalization)
  Sender: FDA-Public Use
  Company Number: DK-MYLANLABS-2010S1008632

PATIENT
  Age: 18 Year
  Sex: Female

DRUGS (9)
  1. FUROSEMIDE [Suspect]
     Route: 041
  2. CLARITHROMYCIN [Concomitant]
     Indication: MYCOPLASMA INFECTION
  3. MEROPENEM [Concomitant]
     Indication: MYCOPLASMA INFECTION
  4. REMIFENTANIL [Concomitant]
  5. ESOMEPRAZOLE MAGNESIUM [Concomitant]
  6. PARACETAMOL [Concomitant]
  7. DALTEPARIN SODIUM [Concomitant]
  8. ACTRAPID [Concomitant]
  9. METHYLPREDNISOLONE [Concomitant]
     Route: 042

REACTIONS (3)
  - BLISTER [None]
  - HEART RATE INCREASED [None]
  - HYPERTHERMIA [None]
